FAERS Safety Report 8054683-8 (Version None)
Quarter: 2012Q1

REPORT INFORMATION
  Report Type: 
  Country: None (occurrence: None)
  Receive Date: 20120119
  Receipt Date: 20120112
  Transmission Date: 20120608
  Serious: No
  Sender: FDA-Public Use
  Company Number: US-PFIZER INC-2012003539

PATIENT
  Sex: Male

DRUGS (2)
  1. PRISTIQ [Suspect]
     Dosage: 100 MG, 3X/DAY
     Dates: start: 20110104
  2. PRISTIQ [Suspect]
     Dosage: 100 MG, 1X/DAY
     Dates: end: 20110103

REACTIONS (4)
  - TREMOR [None]
  - DYSGEUSIA [None]
  - SKIN ODOUR ABNORMAL [None]
  - VISION BLURRED [None]
